FAERS Safety Report 16127230 (Version 1)
Quarter: 2019Q1

REPORT INFORMATION
  Report Type: Spontaneous
  Country: AE (occurrence: AE)
  Receive Date: 20190328
  Receipt Date: 20190328
  Transmission Date: 20190418
  Serious: Yes (Other)
  Sender: FDA-Public Use
  Company Number: PHHY2019AE065545

PATIENT
  Age: 4 Year
  Sex: Female

DRUGS (3)
  1. METHYLPREDNISOLONE. [Suspect]
     Active Substance: METHYLPREDNISOLONE
     Indication: DERMATOMYOSITIS
     Dosage: UNK
     Route: 042
  2. METHYLPREDNISOLONE. [Suspect]
     Active Substance: METHYLPREDNISOLONE
     Dosage: 0.86 U/KG , QD
     Route: 042
  3. METHOTREXATE. [Concomitant]
     Active Substance: METHOTREXATE
     Indication: DERMATOMYOSITIS
     Dosage: UNK UNK, QW
     Route: 058

REACTIONS (6)
  - Metabolic acidosis [Unknown]
  - Diabetic ketoacidosis [Unknown]
  - Ketonuria [Unknown]
  - Insulin resistance [Recovering/Resolving]
  - Type 1 diabetes mellitus [Recovering/Resolving]
  - Hyperglycaemia [Recovering/Resolving]
